FAERS Safety Report 9350683 (Version 2)
Quarter: 2013Q2

REPORT INFORMATION
  Report Type: Report from Study
  Country: AR (occurrence: AR)
  Receive Date: 20130617
  Receipt Date: 20130627
  Transmission Date: 20140414
  Serious: Yes (Other)
  Sender: FDA-Public Use
  Company Number: PHHY2013AR060419

PATIENT
  Sex: Male

DRUGS (3)
  1. DIOVAN D [Suspect]
     Dosage: UNK UKN, UNK
     Dates: start: 201303
  2. DIOVAN D [Suspect]
     Dosage: 1 DF, HALF TABLET ON THE MORNING AND HALF TABLET IN THE AFTERNOON
     Dates: start: 201303
  3. LOSARTAN [Suspect]
     Dosage: UNK UKN, UNK

REACTIONS (5)
  - Gait disturbance [Not Recovered/Not Resolved]
  - Hypertension [Recovering/Resolving]
  - Muscle spasms [Not Recovered/Not Resolved]
  - Concomitant disease aggravated [Not Recovered/Not Resolved]
  - Wrong technique in drug usage process [Recovering/Resolving]
